FAERS Safety Report 7466093-2 (Version None)
Quarter: 2011Q2

REPORT INFORMATION
  Report Type: 
  Country: None (occurrence: None)
  Receive Date: 20110509
  Receipt Date: 20100618
  Transmission Date: 20111010
  Serious: No
  Sender: FDA-Public Use
  Company Number: US-ALEXION-A201000717

PATIENT
  Sex: Female

DRUGS (4)
  1. SOLIRIS [Suspect]
     Dosage: 900 MG, Q2W
     Route: 042
     Dates: start: 20080801, end: 20100601
  2. SOLIRIS [Suspect]
     Dosage: 900 MG, Q12D
     Dates: start: 20100601
  3. SOLIRIS [Suspect]
     Indication: PAROXYSMAL NOCTURNAL HAEMOGLOBINURIA
     Dosage: 600 MG, QW X 4
     Route: 042
     Dates: start: 20080701, end: 20080801
  4. SOLIRIS [Suspect]
     Dosage: 900 MG, Q2W
     Route: 042

REACTIONS (13)
  - INFLUENZA LIKE ILLNESS [None]
  - HEADACHE [None]
  - BLOOD LACTATE DEHYDROGENASE INCREASED [None]
  - HAEMOLYSIS [None]
  - MUSCLE SPASMS [None]
  - BLOOD GLUCOSE INCREASED [None]
  - BLOOD IRON INCREASED [None]
  - CHILLS [None]
  - CHROMATURIA [None]
  - OESOPHAGEAL DISORDER [None]
  - JAUNDICE [None]
  - ARTHRALGIA [None]
  - PYREXIA [None]
